FAERS Safety Report 24315010 (Version 1)
Quarter: 2024Q3

REPORT INFORMATION
  Report Type: Spontaneous
  Country: CN (occurrence: CN)
  Receive Date: 20240913
  Receipt Date: 20240913
  Transmission Date: 20241017
  Serious: Yes (Other)
  Sender: CHEPLAPHARM
  Company Number: CN-CHEPLA-2024011596

PATIENT
  Age: 66 Year
  Sex: Female
  Weight: 55 kg

DRUGS (32)
  1. CARBOPLATIN [Suspect]
     Active Substance: CARBOPLATIN
     Indication: Non-small cell lung cancer stage IIIA
     Dosage: CYCLE 1
     Dates: start: 20230223
  2. CARBOPLATIN [Suspect]
     Active Substance: CARBOPLATIN
     Indication: Lung neoplasm malignant
     Dosage: CYCLE 1
     Dates: start: 20230223
  3. CARBOPLATIN [Suspect]
     Active Substance: CARBOPLATIN
     Indication: Non-small cell lung cancer stage IIIA
     Dosage: CYCLE 2
     Dates: start: 20230321
  4. CARBOPLATIN [Suspect]
     Active Substance: CARBOPLATIN
     Indication: Lung neoplasm malignant
     Dosage: CYCLE 2
     Dates: start: 20230321
  5. OLANZAPINE [Suspect]
     Active Substance: OLANZAPINE
     Dosage: 5 MG
     Dates: start: 20230426
  6. OLANZAPINE [Suspect]
     Active Substance: OLANZAPINE
     Dosage: 5 MG, ADJUSTED TO 10 MG ON DAY 2
     Dates: start: 20230427
  7. OLANZAPINE [Suspect]
     Active Substance: OLANZAPINE
     Dosage: 5 MG AT NOON AND 10 MG AT NIGHT ON DAY 3?DAILY DOSE: 15 MILLIGRAM
     Dates: start: 20230428
  8. OLANZAPINE [Suspect]
     Active Substance: OLANZAPINE
     Dosage: TABLETS (10 MG, BID)?DAILY DOSE: 20 MILLIGRAM
  9. PACLITAXEL [Suspect]
     Active Substance: PACLITAXEL
     Indication: Non-small cell lung cancer stage IIIA
     Dosage: CYCLE 1
     Dates: start: 20230223
  10. PACLITAXEL [Suspect]
     Active Substance: PACLITAXEL
     Indication: Lung neoplasm malignant
     Dosage: CYCLE 1
     Dates: start: 20230223
  11. PACLITAXEL [Suspect]
     Active Substance: PACLITAXEL
     Indication: Non-small cell lung cancer stage IIIA
     Dosage: CYCLE 2
     Dates: start: 20230321
  12. PACLITAXEL [Suspect]
     Active Substance: PACLITAXEL
     Indication: Lung neoplasm malignant
     Dosage: CYCLE 2
     Dates: start: 20230321
  13. NIVOLUMAB [Suspect]
     Active Substance: NIVOLUMAB
     Indication: Non-small cell lung cancer stage IIIA
     Dates: start: 20230223
  14. NIVOLUMAB [Suspect]
     Active Substance: NIVOLUMAB
     Indication: Lung neoplasm malignant
     Dates: start: 20230223
  15. VEDOLIZUMAB [Suspect]
     Active Substance: VEDOLIZUMAB
     Indication: Lung neoplasm malignant
     Dates: start: 20230321
  16. VEDOLIZUMAB [Suspect]
     Active Substance: VEDOLIZUMAB
     Indication: Non-small cell lung cancer stage IIIA
     Dates: start: 20230321
  17. METHYLPREDNISOLONE [Suspect]
     Active Substance: METHYLPREDNISOLONE
     Indication: Chorea
     Dosage: THEN REDUCED TO 16 MG (QD) ON 21APR2023,?DAILY DOSE: 16 MILLIGRAM
     Dates: start: 20230321
  18. METHYLPREDNISOLONE [Suspect]
     Active Substance: METHYLPREDNISOLONE
     Indication: Chorea
     Dosage: (80 MG, QD, ADMINISTERED UNTIL 08APR2023)?DAILY DOSE: 80 MILLIGRAM
     Dates: start: 20230406, end: 20230408
  19. METHYLPREDNISOLONE [Suspect]
     Active Substance: METHYLPREDNISOLONE
     Indication: Chorea
     Dosage: METHYLPREDNISOLONE TABLETS 20 MG QD)?DAILY DOSE: 20 MILLIGRAM
     Dates: start: 20230418
  20. METHYLPREDNISOLONE [Suspect]
     Active Substance: METHYLPREDNISOLONE
     Indication: Chorea
     Dosage: GRADUALLY REDUCED TO 60 MG QD ON 04MAY2023, FOR 12D?DAILY DOSE: 60 MILLIGRAM
     Dates: start: 20230504
  21. METHYLPREDNISOLONE [Suspect]
     Active Substance: METHYLPREDNISOLONE
     Indication: Chorea
     Dosage: (500 MG, QD)?DAILY DOSE: 500 MILLIGRAM
  22. DULOXETINE [Suspect]
     Active Substance: DULOXETINE
     Indication: Chorea
     Dosage: ENTERIC-COATED CAPSULES (20 MG, BID)?DAILY DOSE: 40 MILLIGRAM
  23. ALPRAZOLAM [Suspect]
     Active Substance: ALPRAZOLAM
     Indication: Chorea
     Dosage: TABLETS (0.2 MG, BID)?DAILY DOSE: 0.4 MILLIGRAM
  24. LORAZEPAM [Suspect]
     Active Substance: LORAZEPAM
     Dosage: DAILY DOSE: 2 MILLIGRAM
  25. METHYLCOBALAMIN [Suspect]
     Active Substance: METHYLCOBALAMIN
     Dosage: MECOBALAMIN TABLETS (0.5 G, TID)?DAILY DOSE: 1.5 GRAM
  26. METHYLCOBALAMIN [Suspect]
     Active Substance: METHYLCOBALAMIN
     Dosage: MECOBALAMIN TABLETS (0.5 MG, BID)?DAILY DOSE: 1 MILLIGRAM
  27. ESOMEPRAZOLE [Suspect]
     Active Substance: ESOMEPRAZOLE
     Dosage: ENTERIC-COATED TABLETS (20 MG, QD)?DAILY DOSE: 20 MILLIGRAM
  28. LEVOFLOXACIN [Suspect]
     Active Substance: LEVOFLOXACIN
     Dosage: LEVOFLOXACIN TABLETS (0.5G, QD)?DAILY DOSE: 0.5 GRAM
  29. HUMAN IMMUNOGLOBULIN G [Suspect]
     Active Substance: HUMAN IMMUNOGLOBULIN G
     Dosage: (20G, QD, FROM 27APR2023 TO 01MAY2023)
     Route: 042
     Dates: start: 20230427, end: 20230501
  30. TRIHEXYPHENIDYL [Suspect]
     Active Substance: TRIHEXYPHENIDYL
     Indication: Chorea
     Dosage: TRIHEXYPHENIDYL TABLETS (2 MG, BID)?DAILY DOSE: 4 MILLIGRAM
  31. CLONAZEPAM [Suspect]
     Active Substance: CLONAZEPAM
     Indication: Chorea
     Dosage: CLONAZEPAM TABLETS (1 MG, Q12H)?DAILY DOSE: 2 MILLIGRAM
  32. CLOZAPINE [Suspect]
     Active Substance: CLOZAPINE
     Indication: Chorea
     Dosage: CLOZAPINE TABLETS (12.5 MG, BID)?DAILY DOSE: 25 MILLIGRAM

REACTIONS (12)
  - Pulmonary embolism [Unknown]
  - Pneumonitis [Unknown]
  - Pain [Unknown]
  - Dyspnoea [Unknown]
  - Irritability [Unknown]
  - Dysarthria [Unknown]
  - Vision blurred [Unknown]
  - Cough [Unknown]
  - Sleep disorder [Unknown]
  - Aphasia [Unknown]
  - Agitation [Unknown]
  - Off label use [Unknown]

NARRATIVE: CASE EVENT DATE: 20230322
